FAERS Safety Report 14634216 (Version 1)
Quarter: 2018Q1

REPORT INFORMATION
  Report Type: Spontaneous
  Country: DE (occurrence: DE)
  Receive Date: 20180314
  Receipt Date: 20180314
  Transmission Date: 20180509
  Serious: Yes (Hospitalization)
  Sender: FDA-Public Use
  Company Number: DE-CIPLA LTD.-2018DE10770

PATIENT

DRUGS (11)
  1. VALPROAT [Suspect]
     Active Substance: VALPROATE SODIUM
     Dosage: 1075 MG, DAILY
     Route: 048
  2. SALBUTAMOL [Suspect]
     Active Substance: ALBUTEROL
     Indication: EPILEPSY
     Dosage: 4 DF, BID
     Route: 065
  3. HYDROCORTISON                      /00028601/ [Concomitant]
     Active Substance: HYDROCORTISONE
     Indication: PRODUCT USED FOR UNKNOWN INDICATION
     Dosage: 10 MG, DAILY
     Route: 065
  4. TOPIRAMATE. [Suspect]
     Active Substance: TOPIRAMATE
     Indication: EPILEPSY
     Dosage: 240 MG, DAILY
     Route: 048
  5. CLOBAZAM [Suspect]
     Active Substance: CLOBAZAM
     Indication: EPILEPSY
     Dosage: 11 MG, DAILY
     Route: 048
  6. VALPROAT [Suspect]
     Active Substance: VALPROATE SODIUM
     Indication: EPILEPSY
     Dosage: 825 MG, DAILY
     Route: 048
  7. SULTIAME [Suspect]
     Active Substance: SULTHIAME
     Indication: EPILEPSY
     Dosage: 200 MG, DAILY
     Route: 048
  8. L-THYROXIN                         /00068001/ [Concomitant]
     Active Substance: LEVOTHYROXINE
     Indication: PRODUCT USED FOR UNKNOWN INDICATION
     Dosage: 50 ?G, DAILY
     Route: 065
  9. CLOBAZAM [Suspect]
     Active Substance: CLOBAZAM
     Dosage: 9 MG, UNK
     Route: 048
  10. CLOBAZAM [Suspect]
     Active Substance: CLOBAZAM
     Dosage: 7 MG, DAILY
     Route: 048
  11. CIRCADIN [Concomitant]
     Active Substance: MELATONIN
     Indication: PRODUCT USED FOR UNKNOWN INDICATION
     Dosage: 6 MG, DAILY
     Route: 065

REACTIONS (4)
  - Epilepsy [Recovered/Resolved]
  - Disturbance in attention [Recovered/Resolved]
  - Bronchitis [Recovering/Resolving]
  - Drug intolerance [Unknown]

NARRATIVE: CASE EVENT DATE: 20160703
